FAERS Safety Report 24289851 (Version 2)
Quarter: 2024Q3

REPORT INFORMATION
  Report Type: Spontaneous
  Country: JP (occurrence: JP)
  Receive Date: 20240906
  Receipt Date: 20240930
  Transmission Date: 20241016
  Serious: Yes (Hospitalization)
  Sender: EMD SERONO INC
  Company Number: JP-Merck Healthcare KGaA-2024047033

PATIENT
  Age: 73 Year
  Sex: Male
  Weight: 57 kg

DRUGS (7)
  1. METGLUCO [Suspect]
     Active Substance: METFORMIN HYDROCHLORIDE
     Indication: Type 2 diabetes mellitus
     Dosage: AFTER BREAKFAST AND SUPPER
     Route: 048
  2. URSODIOL [Concomitant]
     Active Substance: URSODIOL
     Indication: Product used for unknown indication
     Dosage: 3 TABLETS DIVIDED IN 3 DOSES AFTER EACH MEAL
  3. CELECOXIB [Concomitant]
     Active Substance: CELECOXIB
     Indication: Product used for unknown indication
     Dosage: 2 TABLETS DIVIDED IN 2 DOSES AFTER BREAKFAST AND SUPPER
  4. BISOPROLOL FUMARATE [Concomitant]
     Active Substance: BISOPROLOL FUMARATE
     Indication: Product used for unknown indication
     Dosage: AFTER BREAKFAST
  5. NIFEDIPINE [Concomitant]
     Active Substance: NIFEDIPINE
     Indication: Product used for unknown indication
     Dosage: AFTER BREAKFAST
  6. ASPIRIN [Concomitant]
     Active Substance: ASPIRIN
     Indication: Product used for unknown indication
  7. PITAVASTATIN CALCIUM [Concomitant]
     Active Substance: PITAVASTATIN CALCIUM
     Indication: Product used for unknown indication
     Dosage: AFTER BREAKFAST

REACTIONS (7)
  - Lactic acidosis [Recovering/Resolving]
  - Hypoglycaemia [Recovering/Resolving]
  - Aspartate aminotransferase increased [Unknown]
  - Blood urea increased [Unknown]
  - Gamma-glutamyltransferase increased [Unknown]
  - Contraindicated product administered [Unknown]
  - Glomerular filtration rate decreased [Unknown]
